FAERS Safety Report 5657675-9 (Version None)
Quarter: 2008Q1

REPORT INFORMATION
  Report Type: 
  Country: None (occurrence: None)
  Receive Date: 20080310
  Receipt Date: 20080303
  Transmission Date: 20080703
  Serious: Yes (Other)
  Sender: FDA-Public Use
  Company Number: US-BOEHRINGER INGELHEIM GMBH, GERMANY-2008-BP-03123RO

PATIENT
  Age: 5 Year
  Sex: Female

DRUGS (13)
  1. METHOTREXATE [Suspect]
     Indication: B PRECURSOR TYPE ACUTE LEUKAEMIA
  2. MERCAPTOPURINE [Suspect]
     Indication: B PRECURSOR TYPE ACUTE LEUKAEMIA
  3. DEXAMETHASONE TAB [Suspect]
     Indication: B PRECURSOR TYPE ACUTE LEUKAEMIA
  4. VINCRISTINE [Suspect]
     Indication: B PRECURSOR TYPE ACUTE LEUKAEMIA
  5. ELSPAR [Suspect]
     Indication: B PRECURSOR TYPE ACUTE LEUKAEMIA
  6. TRIMETHOPRIM + SULFAMETHOXAZOLE [Concomitant]
     Indication: ANTIFUNGAL PROPHYLAXIS
     Route: 048
  7. DAPSONE [Concomitant]
     Indication: ANTIFUNGAL PROPHYLAXIS
  8. EMOLLIENT CREAM [Concomitant]
     Indication: ERYTHEMA
     Route: 061
  9. FLUOCINOLONE ACETONIDE [Concomitant]
     Indication: ERYTHEMA
     Route: 061
  10. MOMETASONE FUROATE [Concomitant]
     Indication: ERYTHEMA
     Route: 061
  11. MUPIROCIN [Concomitant]
     Indication: INFECTION
     Route: 061
  12. NAFCILLIN SODIUM [Concomitant]
     Indication: INFECTION
     Route: 042
  13. CEPHALEXIN [Concomitant]
     Indication: INFECTION
     Route: 048

REACTIONS (7)
  - DRUG CLEARANCE DECREASED [None]
  - ERYTHEMA [None]
  - MUCOSAL INFLAMMATION [None]
  - NEUTROPENIA [None]
  - PANCYTOPENIA [None]
  - THROMBOCYTOPENIA [None]
  - TRANSAMINASES INCREASED [None]
